FAERS Safety Report 6292045-4 (Version None)
Quarter: 2009Q3

REPORT INFORMATION
  Report Type: 
  Country: None (occurrence: None)
  Receive Date: 20090731
  Receipt Date: 20090724
  Transmission Date: 20100115
  Serious: Yes (Other)
  Sender: FDA-Public Use
  Company Number: DE-BIOGENIDEC-2009BI016118

PATIENT
  Age: 54 Year
  Sex: Female
  Weight: 62 kg

DRUGS (3)
  1. TYSABRI [Suspect]
     Indication: MULTIPLE SCLEROSIS
     Route: 042
     Dates: start: 20080304, end: 20081117
  2. ANTI INFECTIVE [Concomitant]
     Indication: INFECTION
  3. ACETAMINOPHEN [Concomitant]
     Indication: PAIN

REACTIONS (1)
  - GENITAL ABSCESS [None]
